FAERS Safety Report 7059863-6 (Version None)
Quarter: 2010Q4

REPORT INFORMATION
  Report Type: 
  Country: None (occurrence: None)
  Receive Date: 20101025
  Receipt Date: 20101012
  Transmission Date: 20110411
  Serious: Yes (Hospitalization)
  Sender: FDA-Public Use
  Company Number: PHHY2010FR69161

PATIENT
  Sex: Female

DRUGS (9)
  1. TEGRETOL [Suspect]
     Dosage: UNK
     Dates: start: 19960101, end: 20000101
  2. NEURONTIN [Suspect]
     Indication: OPTIC NEUROPATHY
     Dosage: 800 MG, BID
     Dates: start: 19960101
  3. TOPIRAMATE [Suspect]
     Indication: OPTIC NEUROPATHY
     Dosage: 200 MG, BID
     Dates: start: 20000101
  4. TEGELINE [Suspect]
     Dosage: 10 G FOR 5 DAYS
     Dates: start: 20030101
  5. VIMPAT [Suspect]
     Indication: OPTIC NEUROPATHY
     Dosage: 100 MG, BID
     Dates: start: 20091101, end: 20100528
  6. VIMPAT [Suspect]
     Dosage: 50 MG, BID
     Dates: start: 20100705
  7. LAMICTAL [Concomitant]
     Dosage: UNK
     Dates: start: 19960101, end: 19990101
  8. URBANYL [Concomitant]
     Dosage: UNK
     Dates: start: 20000101, end: 20090101
  9. RIVOTRIL [Concomitant]
     Dosage: 4 DROPS DAILY
     Dates: start: 20090901, end: 20091101

REACTIONS (5)
  - HEMIANOPIA HOMONYMOUS [None]
  - OPTIC NERVE INJURY [None]
  - OPTIC NEUROPATHY [None]
  - VISION BLURRED [None]
  - VISUAL FIELD DEFECT [None]
